FAERS Safety Report 7728582-2 (Version None)
Quarter: 2011Q3

REPORT INFORMATION
  Report Type: 
  Country: None (occurrence: None)
  Receive Date: 20110831
  Receipt Date: 20110831
  Transmission Date: 20111222
  Serious: No
  Sender: FDA-Public Use
  Company Number: None

PATIENT
  Sex: Male

DRUGS (1)
  1. VALIUM [Suspect]
     Dosage: 5MG QID PO
     Route: 048

REACTIONS (1)
  - PRODUCT SUBSTITUTION ISSUE [None]
